FAERS Safety Report 5279743-6 (Version None)
Quarter: 2007Q1

REPORT INFORMATION
  Report Type: 
  Country: None (occurrence: None)
  Receive Date: 20070329
  Receipt Date: 20070327
  Transmission Date: 20070707
  Serious: Yes (Other)
  Sender: FDA-Public Use
  Company Number: US-RB-005688-07

PATIENT
  Sex: Female
  Weight: 51.75 kg

DRUGS (3)
  1. SUBOXONE [Suspect]
     Route: 060
     Dates: start: 20070201, end: 20070301
  2. XANAX [Concomitant]
     Dates: start: 19970101
  3. XANAX [Concomitant]

REACTIONS (6)
  - ABDOMINAL PAIN UPPER [None]
  - ALOPECIA [None]
  - DECREASED APPETITE [None]
  - INSOMNIA [None]
  - SUICIDAL IDEATION [None]
  - WEIGHT DECREASED [None]
